FAERS Safety Report 8847490 (Version 1)
Quarter: 2012Q4

REPORT INFORMATION
  Report Type: 
  Country: US (occurrence: US)
  Receive Date: 20121018
  Receipt Date: 20121018
  Transmission Date: 20130627
  Serious: Yes (Other)
  Sender: FDA-Public Use
  Company Number: PHEH2012US020224

PATIENT
  Sex: Female

DRUGS (10)
  1. SANDOSTATIN LAR DEPOT [Suspect]
     Dosage: 30 mg, UNK
  2. GLIMEPIRIDE [Suspect]
  3. VITAMIN D [Suspect]
  4. MULTIVITAMIN [Suspect]
  5. ESTRADIOL [Suspect]
     Dosage: UNK
  6. PROTONIX [Suspect]
     Dosage: UNK
  7. CALCIUM [Suspect]
  8. CORTEF [Suspect]
  9. IMITREX [Suspect]
  10. FLUDROCORTISONE [Suspect]

REACTIONS (2)
  - Malignant neoplasm progression [Unknown]
  - Metastases to liver [Unknown]
